FAERS Safety Report 8381659-3 (Version None)
Quarter: 2012Q2

REPORT INFORMATION
  Report Type: 
  Country: None (occurrence: None)
  Receive Date: 20120524
  Receipt Date: 20120514
  Transmission Date: 20120825
  Serious: No
  Sender: FDA-Public Use
  Company Number: US-ASTRAZENECA-2012SE30918

PATIENT
  Sex: Female

DRUGS (2)
  1. NEXIUM [Suspect]
     Indication: GASTROOESOPHAGEAL REFLUX DISEASE
     Route: 048
  2. CALCIUM CITRATE [Concomitant]
     Dosage: TWO TIMES A DAY

REACTIONS (5)
  - DYSPEPSIA [None]
  - BONE DISORDER [None]
  - OFF LABEL USE [None]
  - OSTEOARTHRITIS [None]
  - OSTEOPOROSIS [None]
